FAERS Safety Report 13550588 (Version 1)
Quarter: 2017Q2

REPORT INFORMATION
  Report Type: Spontaneous
  Country: US (occurrence: US)
  Receive Date: 20170516
  Receipt Date: 20170516
  Transmission Date: 20170830
  Serious: Yes (Hospitalization)
  Sender: FDA-Public Use
  Company Number: None

PATIENT
  Age: 46 Year
  Sex: Male
  Weight: 64.6 kg

DRUGS (1)
  1. LEVEMIR [Suspect]
     Active Substance: INSULIN DETEMIR
     Indication: DIABETES MELLITUS
     Dosage: CHRONIC 15UNITS SQ
     Route: 058

REACTIONS (3)
  - Confusional state [None]
  - Acute kidney injury [None]
  - Hypoglycaemia [None]

NARRATIVE: CASE EVENT DATE: 20170224
